FAERS Safety Report 5282618-X (Version None)
Quarter: 2007Q1

REPORT INFORMATION
  Report Type: 
  Country: None (occurrence: None)
  Receive Date: 20070331
  Receipt Date: 20070309
  Transmission Date: 20070707
  Serious: Yes (Other)
  Sender: FDA-Public Use
  Company Number: US-SHR-US-2007-010867

PATIENT
  Age: 42 Year
  Sex: Male

DRUGS (1)
  1. MAGNEVIST [Suspect]
     Dosage: 30 ML, 1 DOSE
     Route: 042
     Dates: start: 20060627, end: 20060627

REACTIONS (2)
  - ATRIAL FIBRILLATION [None]
  - NEPHROGENIC FIBROSING DERMOPATHY [None]
